FAERS Safety Report 5813806-9 (Version None)
Quarter: 2008Q3

REPORT INFORMATION
  Report Type: 
  Country: None (occurrence: None)
  Receive Date: 20080717
  Receipt Date: 20080711
  Transmission Date: 20090109
  Serious: Yes (Hospitalization)
  Sender: FDA-Public Use
  Company Number: GB-AVENTIS-200813846GDDC

PATIENT
  Age: 42 Year
  Sex: Female
  Weight: 59 kg

DRUGS (3)
  1. LANTUS [Suspect]
     Route: 058
     Dates: start: 20070101, end: 20080501
  2. FEXOFENADINE [Concomitant]
     Route: 048
     Dates: start: 20080401, end: 20080501
  3. ETHINYL ESTRADIOL AND LEVONORGESTREL [Concomitant]
     Indication: CONTRACEPTION
     Route: 048

REACTIONS (4)
  - CHEST DISCOMFORT [None]
  - DYSPNOEA [None]
  - PRURITUS [None]
  - URTICARIA [None]
